FAERS Safety Report 5369799-4 (Version None)
Quarter: 2007Q2

REPORT INFORMATION
  Report Type: 
  Country: None (occurrence: None)
  Receive Date: 20070621
  Receipt Date: 20070612
  Transmission Date: 20071010
  Serious: Yes (Other)
  Sender: FDA-Public Use
  Company Number: 2007324158

PATIENT
  Age: 7 Year
  Sex: Female

DRUGS (1)
  1. BENADRYL [Suspect]
     Indication: HYPERSENSITIVITY
     Dosage: 2 TABLETS ONCE; ORAL
     Route: 048
     Dates: start: 20070610, end: 20070610

REACTIONS (3)
  - LOCAL SWELLING [None]
  - SWELLING FACE [None]
  - URTICARIA [None]
